FAERS Safety Report 13222029 (Version 5)
Quarter: 2018Q3

REPORT INFORMATION
  Report Type: Other
  Country: US (occurrence: US)
  Receive Date: 20170211
  Receipt Date: 20180821
  Transmission Date: 20181010
  Serious: Yes (Hospitalization, Disabling, Other)
  Sender: FDA-Public Use
  Company Number: US-ACORDA-ACO_132106_2016

PATIENT
  Age: 72 Year
  Sex: Male

DRUGS (2)
  1. AMPYRA [Suspect]
     Active Substance: DALFAMPRIDINE
     Indication: MULTIPLE SCLEROSIS
     Dosage: 10 MG, BID
     Route: 048
     Dates: start: 20160426, end: 20180401
  2. AMPYRA [Suspect]
     Active Substance: DALFAMPRIDINE
     Dosage: 10 MG, BID
     Route: 048
     Dates: start: 20180705

REACTIONS (14)
  - Gait disturbance [Recovered/Resolved]
  - Gait inability [Recovered/Resolved]
  - Urinary tract infection [Unknown]
  - Bedridden [Recovered/Resolved]
  - Motor dysfunction [Unknown]
  - Muscular weakness [Unknown]
  - Therapy cessation [Recovered/Resolved]
  - Surgery [Unknown]
  - Condition aggravated [Recovered/Resolved]
  - Therapeutic response unexpected [Unknown]
  - Gait disturbance [Recovered/Resolved]
  - Asthenia [Recovering/Resolving]
  - Nephrolithiasis [Recovered/Resolved]
  - Gait disturbance [Recovering/Resolving]

NARRATIVE: CASE EVENT DATE: 20161003
